FAERS Safety Report 8947488 (Version 1)
Quarter: 2012Q4

REPORT INFORMATION
  Report Type: 
  Country: US (occurrence: US)
  Receive Date: 20121205
  Receipt Date: 20121205
  Transmission Date: 20130627
  Serious: No
  Sender: FDA-Public Use
  Company Number: US-PFIZER INC-2012302176

PATIENT
  Age: 64 Year
  Sex: Female
  Weight: 68.03 kg

DRUGS (5)
  1. PREMARIN [Suspect]
     Indication: VAGINAL INFECTION
     Dosage: 1 g, 3x/week
     Route: 067
     Dates: start: 20121108, end: 20121128
  2. PREMARIN [Suspect]
     Indication: BLADDER DISORDER
  3. BENADRYL [Suspect]
     Indication: ITCHING
     Dosage: 50 mg, 2x/day
     Route: 048
     Dates: start: 201211, end: 201211
  4. BENADRYL [Suspect]
     Indication: RASH ERYTHEMATOUS
  5. SIMVASTATIN [Concomitant]
     Indication: BLOOD CHOLESTEROL ABNORMAL
     Dosage: 40 mg, daily

REACTIONS (2)
  - Rash erythematous [Not Recovered/Not Resolved]
  - Pruritus [Not Recovered/Not Resolved]
